FAERS Safety Report 11855201 (Version 1)
Quarter: 2015Q4

REPORT INFORMATION
  Report Type: Spontaneous
  Country: US (occurrence: US)
  Receive Date: 20151221
  Receipt Date: 20151221
  Transmission Date: 20160305
  Serious: No
  Sender: FDA-Public Use
  Company Number: US-TEVA-580417USA

PATIENT
  Sex: Female
  Weight: 52.21 kg

DRUGS (2)
  1. NEOMYCIN [Suspect]
     Active Substance: NEOMYCIN
     Indication: SMALL INTESTINAL BACTERIAL OVERGROWTH
     Dates: start: 20150716
  2. METRONIDAZOLE. [Suspect]
     Active Substance: METRONIDAZOLE
     Indication: SMALL INTESTINAL BACTERIAL OVERGROWTH
     Dates: start: 20150716

REACTIONS (3)
  - Insomnia [Unknown]
  - Diarrhoea [Unknown]
  - Malaise [Unknown]
